FAERS Safety Report 9253060 (Version 2)
Quarter: 2014Q3

REPORT INFORMATION
  Report Type: Spontaneous
  Country: US (occurrence: US)
  Receive Date: 20130424
  Receipt Date: 20140813
  Transmission Date: 20150326
  Serious: Yes (Other)
  Sender: FDA-Public Use
  Company Number: CHPA2013US006692

PATIENT
  Age: 85 Year
  Sex: Female

DRUGS (2)
  1. PRADAXA [Suspect]
     Active Substance: DABIGATRAN ETEXILATE MESYLATE
     Indication: DRY SKIN PROPHYLAXIS
  2. KERI UNKNOWN [Suspect]
     Active Substance: LANOLIN\MINERAL OIL

REACTIONS (3)
  - Gingival bleeding [Recovered/Resolved]
  - Diabetes mellitus [Recovering/Resolving]
  - Atrial fibrillation [Recovering/Resolving]

NARRATIVE: CASE EVENT DATE: 1991
